FAERS Safety Report 24761639 (Version 1)
Quarter: 2024Q4

REPORT INFORMATION
  Report Type: Report from Study
  Country: IT (occurrence: IT)
  Receive Date: 20241220
  Receipt Date: 20241220
  Transmission Date: 20250115
  Serious: Yes (Hospitalization)
  Sender: DAIICHI
  Company Number: None

PATIENT
  Age: 76 Year
  Sex: Female
  Weight: 44 kg

DRUGS (1)
  1. ENHERTU [Suspect]
     Active Substance: FAM-TRASTUZUMAB DERUXTECAN-NXKI
     Indication: Breast cancer stage IV
     Dosage: 140.8 MG, QD (4.4 MG/KG FOR 8 CYCLES THEN 3.2 MG/KG FOR 1 CYCLE (G1 EVERY 21 DAYS)
     Route: 051
     Dates: start: 20240409, end: 20241025

REACTIONS (2)
  - Cardiac failure [Recovering/Resolving]
  - Pneumonitis [Recovering/Resolving]

NARRATIVE: CASE EVENT DATE: 20241117
